FAERS Safety Report 8555502 (Version 2)
Quarter: 2012Q4

REPORT INFORMATION
  Report Type: 
  Country: CA (occurrence: CA)
  Receive Date: 20120510
  Receipt Date: 20121221
  Transmission Date: 20130627
  Serious: Yes (Disabling, Other)
  Sender: FDA-Public Use
  Company Number: CA-SHIRE-ALL1-2012-02322

PATIENT
  Age: 42 Year
  Sex: Male
  Weight: 77.5 kg

DRUGS (1)
  1. MEZAVANT [Suspect]
     Indication: COLITIS ULCERATIVE
     Dosage: 4.8 g, 1x/day:qd
     Route: 048
     Dates: start: 20080904, end: 20120405

REACTIONS (1)
  - Tubulointerstitial nephritis [Recovered/Resolved with Sequelae]
